FAERS Safety Report 21145613 (Version 1)
Quarter: 2022Q3

REPORT INFORMATION
  Report Type: Spontaneous
  Country: DE (occurrence: DE)
  Receive Date: 20220729
  Receipt Date: 20220729
  Transmission Date: 20221027
  Serious: Yes (Other)
  Sender: FDA-Public Use
  Company Number: DE-UCBSA-2022042056

PATIENT
  Age: 60 Year
  Sex: Female

DRUGS (1)
  1. NEUPRO [Suspect]
     Active Substance: ROTIGOTINE
     Indication: Restless legs syndrome
     Dosage: 2MG DAILY
     Route: 062
     Dates: start: 20220628

REACTIONS (1)
  - Electric shock sensation [Unknown]

NARRATIVE: CASE EVENT DATE: 20220705
